FAERS Safety Report 13089800 (Version 1)
Quarter: 2017Q1

REPORT INFORMATION
  Report Type: Spontaneous
  Country: US (occurrence: US)
  Receive Date: 20170105
  Receipt Date: 20170105
  Transmission Date: 20170428
  Serious: No
  Sender: FDA-Public Use
  Company Number: US-PERRIGO-16US000281

PATIENT
  Age: 45 Year
  Sex: Female
  Weight: 81.63 kg

DRUGS (1)
  1. CLINDESSE [Suspect]
     Active Substance: CLINDAMYCIN PHOSPHATE
     Indication: BACTERIAL VAGINOSIS
     Dosage: 100 MG, SINGLE
     Route: 067
     Dates: start: 20160106, end: 20160106

REACTIONS (1)
  - Drug ineffective [Unknown]

NARRATIVE: CASE EVENT DATE: 20160106
